FAERS Safety Report 5348100-6 (Version None)
Quarter: 2007Q2

REPORT INFORMATION
  Report Type: 
  Country: None (occurrence: None)
  Receive Date: 20070606
  Receipt Date: 20070529
  Transmission Date: 20071010
  Serious: Yes (Hospitalization)
  Sender: FDA-Public Use
  Company Number: US-AMGEN-STX217716

PATIENT
  Sex: Female

DRUGS (5)
  1. ENBREL [Suspect]
     Indication: RHEUMATOID ARTHRITIS
     Route: 058
     Dates: start: 20051014, end: 20070329
  2. SYNTHROID [Concomitant]
  3. WELLBUTRIN [Concomitant]
  4. PROZAC [Concomitant]
  5. PREDNISONE TAB [Concomitant]
     Dates: end: 20060101

REACTIONS (2)
  - IDIOPATHIC THROMBOCYTOPENIC PURPURA [None]
  - SKIN LESION [None]
